FAERS Safety Report 13859376 (Version 1)
Quarter: 2017Q3

REPORT INFORMATION
  Report Type: Spontaneous
  Country: US (occurrence: US)
  Receive Date: 20170811
  Receipt Date: 20170811
  Transmission Date: 20171127
  Serious: No
  Sender: FDA-Public Use
  Company Number: US-PERRIGO-17US023538

PATIENT
  Age: 82 Year
  Sex: Female
  Weight: 81.63 kg

DRUGS (1)
  1. LORATADINE. [Suspect]
     Active Substance: LORATADINE
     Indication: SNEEZING
     Dosage: 10 MG, SINGLE
     Route: 048
     Dates: start: 20170508, end: 20170508

REACTIONS (8)
  - Wound secretion [Recovered/Resolved]
  - Swelling [Unknown]
  - Pain in jaw [Recovered/Resolved]
  - Periorbital oedema [Unknown]
  - Pruritus [Unknown]
  - Swelling face [Recovering/Resolving]
  - Rosacea [Recovering/Resolving]
  - Scab [Unknown]

NARRATIVE: CASE EVENT DATE: 20170509
